FAERS Safety Report 18173544 (Version 2)
Quarter: 2020Q3

REPORT INFORMATION
  Report Type: Spontaneous
  Country: US (occurrence: US)
  Receive Date: 20200820
  Receipt Date: 20200828
  Transmission Date: 20201103
  Serious: No
  Sender: FDA-Public Use
  Company Number: US-ASTRAZENECA-2020SF03671

PATIENT
  Sex: Female

DRUGS (1)
  1. BYDUREON BCISE [Suspect]
     Active Substance: EXENATIDE
     Route: 065

REACTIONS (7)
  - Feeling abnormal [Unknown]
  - Device malfunction [Unknown]
  - Neuropathy peripheral [Unknown]
  - Pain [Unknown]
  - Visual impairment [Unknown]
  - Lipoma [Unknown]
  - Device leakage [Unknown]
